FAERS Safety Report 9307328 (Version 2)
Quarter: 2013Q3

REPORT INFORMATION
  Report Type: Spontaneous
  Country: US (occurrence: US)
  Receive Date: 20130524
  Receipt Date: 20130910
  Transmission Date: 20140515
  Serious: No
  Sender: FDA-Public Use
  Company Number: US-BIOGENIDEC-2013BI045648

PATIENT
  Age: 40 Year
  Sex: Female

DRUGS (1)
  1. TYSABRI [Suspect]
     Indication: MULTIPLE SCLEROSIS
     Route: 042
     Dates: start: 20121109

REACTIONS (6)
  - Depressed mood [Recovered/Resolved]
  - Colitis ulcerative [Recovered/Resolved]
  - Muscle contractions involuntary [Recovered/Resolved]
  - Paraesthesia [Recovered/Resolved]
  - Blood iron decreased [Unknown]
  - Fatigue [Recovered/Resolved]
